FAERS Safety Report 15306053 (Version 1)
Quarter: 2018Q3

REPORT INFORMATION
  Report Type: Spontaneous
  Country: US (occurrence: US)
  Receive Date: 20180810
  Receipt Date: 20180810
  Transmission Date: 20181010
  Serious: Yes (Death, Life-Threatening, Hospitalization, Disabling, Other)
  Sender: FDA-Public Use
  Company Number: None

PATIENT
  Age: 87 Year
  Sex: Female
  Weight: 101.25 kg

DRUGS (11)
  1. SYNTHROID [Concomitant]
     Active Substance: LEVOTHYROXINE SODIUM
  2. VITAMIN B12 [Concomitant]
     Active Substance: CYANOCOBALAMIN
  3. ELIQUIS [Concomitant]
     Active Substance: APIXABAN
  4. LIPITOR [Concomitant]
     Active Substance: ATORVASTATIN CALCIUM
  5. DIO AN [Concomitant]
  6. VITAMIN D [Concomitant]
     Active Substance: CHOLECALCIFEROL
  7. NEURONTIN [Concomitant]
     Active Substance: GABAPENTIN
  8. PROTAMINE [Suspect]
     Active Substance: PROTAMINE
     Indication: TRANSCATHETER AORTIC VALVE IMPLANTATION
     Dates: start: 20180712
  9. LANTUS [Concomitant]
     Active Substance: INSULIN GLARGINE
  10. HUMALOG [Concomitant]
     Active Substance: INSULIN LISPRO
  11. FOSAMAX [Concomitant]
     Active Substance: ALENDRONATE SODIUM

REACTIONS (9)
  - Haemodialysis [None]
  - Tracheitis [None]
  - Rib fracture [None]
  - Anaphylactic shock [None]
  - Pleural effusion [None]
  - Haemothorax [None]
  - Cardiac arrest [None]
  - Renal failure [None]
  - Procedural hypotension [None]

NARRATIVE: CASE EVENT DATE: 20180712
